FAERS Safety Report 4400916-6 (Version None)
Quarter: 2004Q3

REPORT INFORMATION
  Report Type: 
  Country: None (occurrence: None)
  Receive Date: 20040907
  Receipt Date: 20030807
  Transmission Date: 20050211
  Serious: No
  Sender: FDA-Public Use
  Company Number: US-BRISTOL-MYERS SQUIBB COMPANY-12350054

PATIENT
  Age: 39 Year
  Sex: Male
  Weight: 79 kg

DRUGS (6)
  1. COUMADIN [Suspect]
     Indication: TRICUSPID VALVE REPLACEMENT
     Route: 048
     Dates: start: 20030429
  2. COUMADIN [Suspect]
     Indication: PULMONARY VALVE REPLACEMENT
     Route: 048
     Dates: start: 20030429
  3. PAXIL [Concomitant]
  4. VANCOMYCIN [Concomitant]
  5. PREVACID [Concomitant]
  6. DOXEPIN HCL [Concomitant]

REACTIONS (1)
  - ALOPECIA [None]
